FAERS Safety Report 13269595 (Version 1)
Quarter: 2017Q1

REPORT INFORMATION
  Report Type: Spontaneous
  Country: US (occurrence: US)
  Receive Date: 20170224
  Receipt Date: 20170224
  Transmission Date: 20170428
  Serious: Yes (Hospitalization)
  Sender: FDA-Public Use
  Company Number: US-ASTRAZENECA-2017SE20537

PATIENT
  Age: 80 Year
  Sex: Male

DRUGS (4)
  1. CUBICIN [Suspect]
     Active Substance: DAPTOMYCIN
     Indication: ABDOMINAL ABSCESS
     Route: 042
  2. MEROPENEM. [Suspect]
     Active Substance: MEROPENEM
     Indication: ABDOMINAL ABSCESS
     Route: 042
  3. MEROPENEM. [Suspect]
     Active Substance: MEROPENEM
     Indication: PNEUMONIA
     Route: 042
  4. CUBICIN [Suspect]
     Active Substance: DAPTOMYCIN
     Indication: PNEUMONIA
     Route: 042

REACTIONS (1)
  - Eosinophilic pneumonia [Recovered/Resolved]
